FAERS Safety Report 18901148 (Version 2)
Quarter: 2021Q1

REPORT INFORMATION
  Report Type: Spontaneous
  Country: US (occurrence: US)
  Receive Date: 20210216
  Receipt Date: 20210222
  Transmission Date: 20210420
  Serious: No
  Sender: FDA-Public Use
  Company Number: US-PFIZER INC-2021149687

PATIENT
  Age: 72 Year
  Sex: Male

DRUGS (3)
  1. SPRYCEL [Suspect]
     Active Substance: DASATINIB
  2. BOSULIF [Suspect]
     Active Substance: BOSUTINIB MONOHYDRATE
     Indication: ACUTE LYMPHOCYTIC LEUKAEMIA
     Dosage: UNK
  3. GLEEVEC [Suspect]
     Active Substance: IMATINIB MESYLATE
     Dosage: UNK

REACTIONS (3)
  - Pleural effusion [Unknown]
  - Neoplasm progression [Unknown]
  - Off label use [Unknown]
